FAERS Safety Report 7686369-3 (Version None)
Quarter: 2011Q3

REPORT INFORMATION
  Report Type: 
  Country: None (occurrence: None)
  Receive Date: 20110816
  Receipt Date: 20110810
  Transmission Date: 20111222
  Serious: Yes (Hospitalization)
  Sender: FDA-Public Use
  Company Number: JP-GLAXOSMITHKLINE-B0739191A

PATIENT
  Sex: Female

DRUGS (5)
  1. SEROQUEL [Concomitant]
     Dosage: 300MG PER DAY
     Route: 048
     Dates: start: 20101208
  2. ROHYPNOL [Concomitant]
     Dosage: 2MG PER DAY
     Route: 048
     Dates: start: 20101114
  3. LAMICTAL [Suspect]
     Indication: BIPOLAR DISORDER
     Dosage: 25MG PER DAY
     Route: 048
     Dates: start: 20110622, end: 20110704
  4. LEXOTAN [Concomitant]
     Dosage: 6MG PER DAY
     Route: 048
     Dates: start: 20101124
  5. AMOBAN [Concomitant]
     Dosage: 10MG PER DAY
     Route: 048
     Dates: start: 20110525

REACTIONS (3)
  - DRUG ERUPTION [None]
  - RASH [None]
  - PYREXIA [None]
